FAERS Safety Report 4386983-7 (Version None)
Quarter: 2004Q2

REPORT INFORMATION
  Report Type: 
  Country: None (occurrence: None)
  Receive Date: 20040623
  Receipt Date: 20040611
  Transmission Date: 20050107
  Serious: Yes (Hospitalization, Other)
  Sender: FDA-Public Use
  Company Number: 2004039441

PATIENT
  Age: 8 Month
  Sex: Male

DRUGS (2)
  1. RANITIDINE HYDROCHLORIDE [Suspect]
     Indication: GASTROOESOPHAGEAL REFLUX DISEASE
     Dosage: ORAL
     Route: 048
  2. ALUMINUM HYDROXIDE TAB [Suspect]
     Indication: GASTROOESOPHAGEAL REFLUX DISEASE
     Dosage: 1/2 TBSP IN EACH 6OZ. BOTTLE (2025MG QD), ORAL
     Route: 048

REACTIONS (18)
  - ASTHENIA [None]
  - AXILLARY PAIN [None]
  - BLOOD ALUMINIUM INCREASED [None]
  - BLOOD PHOSPHORUS DECREASED [None]
  - BONE DISORDER [None]
  - BONE METABOLISM DISORDER [None]
  - DECREASED ACTIVITY [None]
  - DEVELOPMENTAL DELAY [None]
  - HAND FRACTURE [None]
  - LIPIDS DECREASED [None]
  - LOCALISED OEDEMA [None]
  - LOWER LIMB FRACTURE [None]
  - MEDICATION ERROR [None]
  - OSTEOPENIA [None]
  - OSTEOPOROSIS [None]
  - RIB FRACTURE [None]
  - SLEEP DISORDER [None]
  - TENDERNESS [None]
